FAERS Safety Report 6230425-3 (Version None)
Quarter: 2009Q2

REPORT INFORMATION
  Report Type: 
  Country: None (occurrence: None)
  Receive Date: 20090615
  Receipt Date: 20090403
  Transmission Date: 20091009
  Serious: No
  Sender: FDA-Public Use
  Company Number: US-ABBOTT-09P-163-0566691-00

PATIENT
  Sex: Female
  Weight: 91.708 kg

DRUGS (12)
  1. TRILIPIX [Suspect]
     Indication: BLOOD TRIGLYCERIDES INCREASED
     Dates: start: 20090313, end: 20090402
  2. COUMADIN [Concomitant]
     Indication: CORONARY ARTERY BYPASS
     Dates: start: 20080101
  3. COUMADIN [Concomitant]
     Indication: CEREBROVASCULAR ACCIDENT
  4. MULTI-VITAMIN [Concomitant]
     Indication: VITAMIN SUPPLEMENTATION
  5. CARDIS [Concomitant]
     Indication: CORONARY ARTERY BYPASS
  6. CARDIS [Concomitant]
     Indication: CEREBROVASCULAR ACCIDENT
  7. METFORMIN HYDROCHLORIDE [Concomitant]
     Indication: DIABETES MELLITUS
  8. LOVASTATIN [Concomitant]
     Indication: BLOOD TRIGLYCERIDES INCREASED
  9. LISINOPRIL [Concomitant]
     Indication: CEREBROVASCULAR ACCIDENT
  10. METOPROLOL SUCCINATE [Concomitant]
     Indication: CEREBROVASCULAR ACCIDENT
  11. ASPIRIN [Concomitant]
     Indication: CORONARY ARTERY BYPASS
  12. ASPIRIN [Concomitant]
     Indication: CEREBROVASCULAR ACCIDENT

REACTIONS (3)
  - ANTICOAGULATION DRUG LEVEL ABOVE THERAPEUTIC [None]
  - HAEMORRHAGE [None]
  - SKIN LACERATION [None]
